FAERS Safety Report 9655623 (Version 3)
Quarter: 2013Q4

REPORT INFORMATION
  Report Type: Report from Study
  Country: TH (occurrence: TH)
  Receive Date: 20131030
  Receipt Date: 20131120
  Transmission Date: 20140711
  Serious: Yes (Death)
  Sender: FDA-Public Use
  Company Number: TH-ROCHE-1296317

PATIENT
  Age: 80 Year
  Sex: Male

DRUGS (3)
  1. ALTEPLASE [Suspect]
     Indication: PERIPHERAL ISCHAEMIA
     Route: 041
  2. ALTEPLASE [Suspect]
     Indication: EMBOLISM ARTERIAL
  3. HEPARIN [Suspect]
     Indication: THROMBOSIS PROPHYLAXIS
     Dosage: 500 UNITS/HOUR
     Route: 065

REACTIONS (6)
  - Pneumonia [Fatal]
  - Hepatic failure [Fatal]
  - Renal failure [Fatal]
  - Hypovolaemic shock [Fatal]
  - Extravasation [Fatal]
  - Retroperitoneal haematoma [Fatal]
